FAERS Safety Report 12328025 (Version 1)
Quarter: 2016Q2

REPORT INFORMATION
  Report Type: Spontaneous
  Country: US (occurrence: US)
  Receive Date: 20160503
  Receipt Date: 20160503
  Transmission Date: 20160815
  Serious: No
  Sender: FDA-Public Use
  Company Number: US-IMPAX LABORATORIES, INC-2016-IPXL-00011

PATIENT
  Age: 60 Year
  Sex: Female

DRUGS (1)
  1. RYTARY [Suspect]
     Active Substance: CARBIDOPA\LEVODOPA
     Indication: PARKINSON^S DISEASE
     Dosage: (23.75MG/95MG) THREE CAPSULES , 3 /DAY
     Route: 048
     Dates: start: 20160101

REACTIONS (5)
  - Pain [Recovered/Resolved]
  - Drug effect decreased [Not Recovered/Not Resolved]
  - On and off phenomenon [Not Recovered/Not Resolved]
  - Dyskinesia [Unknown]
  - Extra dose administered [Unknown]

NARRATIVE: CASE EVENT DATE: 201601
